FAERS Safety Report 8830069 (Version 1)
Quarter: 2012Q4

REPORT INFORMATION
  Report Type: Spontaneous
  Country: US (occurrence: None)
  Receive Date: 20121005
  Receipt Date: 20121005
  Transmission Date: 20130627
  Serious: Yes (Other)
  Sender: FDA-Public Use
  Company Number: None

PATIENT
  Sex: Female
  Weight: 88.45 kg

DRUGS (2)
  1. TOPIRAMATE [Suspect]
     Indication: SEIZURE
     Dates: start: 201104
  2. LAMOTRIGINE [Suspect]
     Indication: SEIZURE
     Dates: start: 201104

REACTIONS (6)
  - Disorientation [None]
  - Dizziness [None]
  - Balance disorder [None]
  - Vision blurred [None]
  - Diplopia [None]
  - Asthenia [None]
